FAERS Safety Report 5897333-9 (Version None)
Quarter: 2008Q3

REPORT INFORMATION
  Report Type: 
  Country: None (occurrence: None)
  Receive Date: 20080925
  Receipt Date: 20080915
  Transmission Date: 20090109
  Serious: Yes (Hospitalization)
  Sender: FDA-Public Use
  Company Number: US-WYE-H05996308

PATIENT

DRUGS (1)
  1. PRISTIQ [Suspect]
     Dosage: 50 MG - FREQUENCY UNSPECIFIED

REACTIONS (1)
  - PANCREATITIS [None]
